FAERS Safety Report 8950833 (Version 2)
Quarter: 2012Q4

REPORT INFORMATION
  Report Type: 
  Country: IT (occurrence: CH)
  Receive Date: 20121206
  Receipt Date: 20121219
  Transmission Date: 20130627
  Serious: Yes (Hospitalization)
  Sender: FDA-Public Use
  Company Number: CH-FRI-1000040894

PATIENT
  Age: 71 Year
  Sex: Female

DRUGS (13)
  1. LEXOTANIL [Concomitant]
     Dosage: 1.5 mg
     Route: 048
     Dates: end: 201210
  2. AERIUS [Concomitant]
     Dosage: 5 mg
     Route: 048
     Dates: end: 201210
  3. SERETIDE [Concomitant]
     Dosage: 500 mcg
     Route: 055
     Dates: start: 201111
  4. NEBIVOLOL [Suspect]
     Indication: ESSENTIAL HYPERTENSION
     Route: 048
     Dates: start: 201111, end: 20121015
  5. TEGRETOL [Suspect]
     Indication: EPILEPSY
     Dosage: 500 mg
     Route: 048
     Dates: start: 20100628, end: 201210
  6. TEGRETOL [Suspect]
     Dosage: 600 mg
     Route: 048
     Dates: start: 201210
  7. NEBILET [Suspect]
     Indication: ESSENTIAL HYPERTENSION
     Dosage: 5 mg /12.5 mg
     Route: 048
     Dates: start: 20121015, end: 20121022
  8. PLAVIX [Concomitant]
     Indication: ARTERIOSCLEROSIS
     Dosage: 75 mg
     Route: 048
     Dates: start: 201006
  9. MICARDIS [Concomitant]
     Dosage: 80 mg
     Route: 048
     Dates: start: 201006
  10. INEGY [Concomitant]
     Dosage: 20 mg/10 mg
     Route: 048
     Dates: start: 201006
  11. ZANIDIP [Concomitant]
     Dosage: 10 mg
     Route: 048
  12. PANTOZOL [Concomitant]
     Dosage: 80 mg
     Route: 048
  13. GLUTRIL [Concomitant]
     Dosage: 25 mg
     Route: 048

REACTIONS (5)
  - Hyponatraemia [Recovered/Resolved]
  - Hypokalaemia [Recovered/Resolved]
  - Dizziness [Recovered/Resolved]
  - Nausea [Recovered/Resolved]
  - Fatigue [Recovered/Resolved]
